FAERS Safety Report 8174406-1 (Version None)
Quarter: 2012Q1

REPORT INFORMATION
  Report Type: 
  Country: None (occurrence: None)
  Receive Date: 20120229
  Receipt Date: 20120220
  Transmission Date: 20120608
  Serious: Yes (Hospitalization)
  Sender: FDA-Public Use
  Company Number: US-ELI_LILLY_AND_COMPANY-US201202006226

PATIENT
  Age: 65 Year
  Sex: Female

DRUGS (1)
  1. EFFIENT [Suspect]
     Indication: STENT PLACEMENT
     Dosage: 10 MG, UNK
     Dates: start: 20110101

REACTIONS (2)
  - GASTROENTERITIS VIRAL [None]
  - BLOOD PRESSURE DECREASED [None]
